FAERS Safety Report 8207688-8 (Version None)
Quarter: 2012Q1

REPORT INFORMATION
  Report Type: 
  Country: None (occurrence: None)
  Receive Date: 20120313
  Receipt Date: 20120313
  Transmission Date: 20120608
  Serious: Yes (Life-Threatening)
  Sender: FDA-Public Use
  Company Number: None

PATIENT
  Age: 47 Year
  Sex: Female

DRUGS (3)
  1. VICTRELIS [Concomitant]
  2. PEGASYS [Suspect]
     Dosage: 180 MCG WEEKLY SUBQ
     Route: 058
     Dates: start: 20111201, end: 20120306
  3. RIBAVIRIN [Suspect]
     Dosage: 600 MG TWICE DAILY ORAL
     Route: 048
     Dates: start: 20111201, end: 20120306

REACTIONS (1)
  - SUICIDE ATTEMPT [None]
